FAERS Safety Report 8448462-7 (Version None)
Quarter: 2012Q2

REPORT INFORMATION
  Report Type: 
  Country: None (occurrence: None)
  Receive Date: 20120619
  Receipt Date: 20120606
  Transmission Date: 20120825
  Serious: Yes (Hospitalization, Disabling)
  Sender: FDA-Public Use
  Company Number: US-BAYER-2012-058552

PATIENT
  Sex: Female

DRUGS (8)
  1. PREDNISONE [Suspect]
     Indication: PAIN
     Dosage: UNK
     Dates: start: 20100901, end: 20101229
  2. PREDNISONE [Suspect]
     Indication: OEDEMA PERIPHERAL
     Dosage: 10 MG, QD
     Dates: start: 20110201, end: 20111101
  3. VANCOMYCIN [Concomitant]
     Dosage: UNK
     Route: 042
     Dates: start: 20100901
  4. ZANAFLEX [Concomitant]
  5. CHOLECALCIFEROL [Concomitant]
     Dosage: 50000 IU, OW
  6. CIPROFLOXACIN HCL [Suspect]
     Indication: POST PROCEDURAL INFECTION
     Dosage: UNK
     Dates: start: 20100901
  7. ZOSYN [Concomitant]
     Dosage: UNK
     Route: 042
     Dates: start: 20100901
  8. TRIMETHOPRIM + SULFAMETHOXAZOLE [Concomitant]
     Indication: ARTHRITIS INFECTIVE
     Dosage: UNK
     Dates: start: 20100101

REACTIONS (25)
  - JOINT CREPITATION [None]
  - CARTILAGE ATROPHY [None]
  - ARTHRALGIA [None]
  - ASTHENIA [None]
  - HYPERSOMNIA [None]
  - OSTEOPENIA [None]
  - OEDEMA PERIPHERAL [None]
  - JOINT EFFUSION [None]
  - MUSCULOSKELETAL PAIN [None]
  - FRACTURE [None]
  - OSTEOARTHRITIS [None]
  - JOINT SWELLING [None]
  - TENDON DISORDER [None]
  - TENDON PAIN [None]
  - RADIATION ASSOCIATED PAIN [None]
  - FATIGUE [None]
  - ARTHROPATHY [None]
  - BACTERIAL INFECTION [None]
  - PYREXIA [None]
  - TENDON INJURY [None]
  - WOUND SECRETION [None]
  - CHONDROMALACIA [None]
  - OSTEOSCLEROSIS [None]
  - FEELING COLD [None]
  - CARTILAGE INJURY [None]
